FAERS Safety Report 5737572-0 (Version None)
Quarter: 2008Q2

REPORT INFORMATION
  Report Type: 
  Country: None (occurrence: None)
  Receive Date: 20080514
  Receipt Date: 20070723
  Transmission Date: 20081010
  Serious: No
  Sender: FDA-Public Use
  Company Number: US-ABBOTT-07P-163-0375469-00

PATIENT
  Sex: Female
  Weight: 125 kg

DRUGS (1)
  1. ZEMPLAR [Suspect]
     Indication: BLOOD PARATHYROID HORMONE INCREASED
     Route: 050
     Dates: start: 20061001, end: 20070313

REACTIONS (3)
  - CHEST DISCOMFORT [None]
  - HYPOAESTHESIA [None]
  - SENSORY DISTURBANCE [None]
